FAERS Safety Report 6912797-7 (Version None)
Quarter: 2010Q3

REPORT INFORMATION
  Report Type: 
  Country: None (occurrence: None)
  Receive Date: 20100806
  Receipt Date: 20081211
  Transmission Date: 20110219
  Serious: No
  Sender: FDA-Public Use
  Company Number: US-PFIZER INC-2008152886

PATIENT
  Sex: Female
  Weight: 59 kg

DRUGS (1)
  1. DETROL LA [Suspect]
     Indication: HYPERTONIC BLADDER

REACTIONS (4)
  - DIZZINESS [None]
  - NERVOUSNESS [None]
  - TREMOR [None]
  - VISUAL ACUITY REDUCED [None]
